FAERS Safety Report 7498518-0 (Version None)
Quarter: 2011Q2

REPORT INFORMATION
  Report Type: 
  Country: None (occurrence: None)
  Receive Date: 20110516
  Receipt Date: 20110503
  Transmission Date: 20111010
  Serious: Yes (Disabling)
  Sender: FDA-Public Use
  Company Number: 2011MA004894

PATIENT
  Age: 48 Year
  Sex: Male

DRUGS (5)
  1. AMITRIPTYLINE HCL [Concomitant]
  2. CARBAMAZEPINE [Concomitant]
  3. OXCARBAZEPINE [Concomitant]
  4. TRAMADOL HYDROCHLORIDE [Concomitant]
  5. CARBIDOPA AND LEVODOPA [Suspect]
     Indication: PARKINSON'S DISEASE

REACTIONS (9)
  - ON AND OFF PHENOMENON [None]
  - DRUG EFFECT DECREASED [None]
  - ACTIVITIES OF DAILY LIVING IMPAIRED [None]
  - DYSKINESIA [None]
  - PAIN IN EXTREMITY [None]
  - TEMPERATURE INTOLERANCE [None]
  - DRUG INEFFECTIVE [None]
  - INJECTION SITE NODULE [None]
  - PAIN [None]
